FAERS Safety Report 23697055 (Version 1)
Quarter: 2024Q2

REPORT INFORMATION
  Report Type: Spontaneous
  Country: US (occurrence: US)
  Receive Date: 20240402
  Receipt Date: 20240402
  Transmission Date: 20240715
  Serious: Yes (Other)
  Sender: FDA-Public Use
  Company Number: US-GILEAD-2024-0667501

PATIENT
  Age: 79 Year
  Sex: Male
  Weight: 74.8 kg

DRUGS (1)
  1. TECARTUS [Suspect]
     Active Substance: BREXUCABTAGENE AUTOLEUCEL
     Indication: Mantle cell lymphoma
     Dosage: UNK
     Route: 042
     Dates: start: 20230515, end: 20230515

REACTIONS (12)
  - Cytokine release syndrome [Unknown]
  - Immune effector cell-associated neurotoxicity syndrome [Unknown]
  - Encephalopathy [Unknown]
  - Fatigue [Unknown]
  - Confusional state [Unknown]
  - Aphasia [Unknown]
  - Agitation [Unknown]
  - Incontinence [Unknown]
  - Memory impairment [Unknown]
  - Muscular weakness [Unknown]
  - Tremor [Unknown]
  - Diarrhoea [Unknown]

NARRATIVE: CASE EVENT DATE: 20230515
